FAERS Safety Report 4698355-6 (Version None)
Quarter: 2005Q2

REPORT INFORMATION
  Report Type: 
  Country: None (occurrence: None)
  Receive Date: 20050621
  Receipt Date: 20050613
  Transmission Date: 20051028
  Serious: Yes (Other)
  Sender: FDA-Public Use
  Company Number: 8010808

PATIENT
  Age: 42 Year
  Sex: Male
  Weight: 91 kg

DRUGS (2)
  1. KEPPRA [Suspect]
     Indication: GRAND MAL CONVULSION
     Dosage: 1500 MG /D PO
     Route: 048
     Dates: start: 20041105, end: 20041209
  2. TRILEPTAL [Concomitant]
     Indication: TUBEROUS SCLEROSIS

REACTIONS (2)
  - LYMPHOMA [None]
  - RENAL MASS [None]
